FAERS Safety Report 11979622 (Version 1)
Quarter: 2016Q1

REPORT INFORMATION
  Report Type: Report from Study
  Country: US (occurrence: US)
  Receive Date: 20160129
  Receipt Date: 20160129
  Transmission Date: 20160526
  Serious: No
  Sender: FDA-Public Use
  Company Number: US-ABBVIE-15K-163-1409828-00

PATIENT
  Age: 56 Year
  Sex: Female

DRUGS (2)
  1. BABY ASPIRIN [Concomitant]
     Active Substance: ASPIRIN
     Indication: CARDIOVASCULAR EVENT PROPHYLAXIS
  2. HUMIRA [Suspect]
     Active Substance: ADALIMUMAB
     Indication: RHEUMATOID ARTHRITIS
     Route: 058
     Dates: start: 201207

REACTIONS (4)
  - Micturition urgency [Unknown]
  - Hyperhidrosis [Unknown]
  - Cough [Unknown]
  - Contusion [Unknown]

NARRATIVE: CASE EVENT DATE: 201505
